FAERS Safety Report 7474947-6 (Version None)
Quarter: 2011Q2

REPORT INFORMATION
  Report Type: 
  Country: None (occurrence: None)
  Receive Date: 20110509
  Receipt Date: 20110509
  Transmission Date: 20111010
  Serious: Yes (Hospitalization, Other)
  Sender: FDA-Public Use
  Company Number: None

PATIENT
  Age: 36 Year
  Sex: Female
  Weight: 43.5453 kg

DRUGS (2)
  1. YAZ [Suspect]
  2. YAZ [Suspect]
     Indication: CONTRACEPTION
     Dosage: 28 TABLETS ONE DAILY PO
     Route: 048
     Dates: start: 20090826, end: 20110118

REACTIONS (1)
  - CHOLECYSTECTOMY [None]
